FAERS Safety Report 4839915-9 (Version None)
Quarter: 2005Q4

REPORT INFORMATION
  Report Type: 
  Country: None (occurrence: None)
  Receive Date: 20051129
  Receipt Date: 20051123
  Transmission Date: 20060501
  Serious: Yes (Hospitalization)
  Sender: FDA-Public Use
  Company Number: AU-ROCHE-425961

PATIENT
  Age: 67 Year
  Sex: Male

DRUGS (9)
  1. CEFTRIAXONE SODIUM [Suspect]
     Indication: URINARY TRACT DISORDER
     Route: 065
     Dates: start: 20030808, end: 20030813
  2. NITRODERM [Suspect]
     Route: 065
     Dates: start: 20030805
  3. DILANTIN [Suspect]
     Dosage: TRADE NAME REPORTED AS DILANTIN INFATABS.
     Route: 048
     Dates: start: 20021103, end: 20030814
  4. AVAPRO [Suspect]
     Route: 048
     Dates: end: 20030806
  5. ZOLOFT [Concomitant]
  6. ZOTON [Concomitant]
  7. BACLOFEN [Concomitant]
  8. COLOXYL WITH SENNA [Concomitant]
  9. CLOPIDOGREL BISULFATE [Concomitant]
     Dosage: TRADE NAME REPORTED AS ISCOVE.

REACTIONS (2)
  - HEPATIC FUNCTION ABNORMAL [None]
  - JAUNDICE [None]
